FAERS Safety Report 5202586-6 (Version None)
Quarter: 2006Q4

REPORT INFORMATION
  Report Type: 
  Country: None (occurrence: None)
  Receive Date: 20061016
  Receipt Date: 20060821
  Transmission Date: 20070319
  Serious: No
  Sender: FDA-Public Use
  Company Number: 2006SP003080

PATIENT
  Age: 70 Year
  Sex: Female
  Weight: 56.246 kg

DRUGS (3)
  1. LUNESTA [Suspect]
     Indication: INSOMNIA
     Dosage: 2 MG;ORAL
     Route: 048
     Dates: start: 20060801, end: 20060801
  2. AVAPRO [Concomitant]
  3. EVISTA [Concomitant]

REACTIONS (3)
  - DRUG INEFFECTIVE [None]
  - DYSGEUSIA [None]
  - INSOMNIA [None]
